FAERS Safety Report 4431955-7 (Version None)
Quarter: 2004Q3

REPORT INFORMATION
  Report Type: 
  Country: None (occurrence: None)
  Receive Date: 20040819
  Receipt Date: 20040813
  Transmission Date: 20050211
  Serious: Yes (Other)
  Sender: FDA-Public Use
  Company Number: AT-SHR-04-023235

PATIENT
  Age: 43 Year
  Sex: Female
  Weight: 57 kg

DRUGS (1)
  1. MIRENA [Suspect]
     Indication: CONTRACEPTION
     Dosage: 20 UG, CONT, INTR-UTERINE
     Route: 015
     Dates: start: 20010401

REACTIONS (2)
  - INFLAMMATORY CARCINOMA OF THE BREAST [None]
  - OESTROGEN RECEPTOR ASSAY POSITIVE [None]
